FAERS Safety Report 4619388-1 (Version None)
Quarter: 2005Q2

REPORT INFORMATION
  Report Type: 
  Country: None (occurrence: None)
  Receive Date: 20050325
  Receipt Date: 20011218
  Transmission Date: 20051028
  Serious: Yes (Hospitalization)
  Sender: FDA-Public Use
  Company Number: 64886-2002-052

PATIENT
  Age: 51 Year
  Sex: Female

DRUGS (6)
  1. FLUOROURACIL [Suspect]
     Dosage: IV
     Route: 042
  2. CYCLOPHOSPHAMIDE [Suspect]
     Indication: BREAST CANCER
     Dosage: IV
     Route: 042
  3. DOXORUBICIN HCL [Suspect]
     Dosage: IV
     Route: 042
  4. METHOTREXATE [Suspect]
     Dosage: IV
     Route: 042
  5. ZOFRAN [Concomitant]
  6. ONDANSZTRON [Concomitant]

REACTIONS (2)
  - GRANULOCYTOPENIA [None]
  - PNEUMONIA [None]
